FAERS Safety Report 8515247-2 (Version None)
Quarter: 2012Q3

REPORT INFORMATION
  Report Type: 
  Country: None (occurrence: None)
  Receive Date: 20120717
  Receipt Date: 20120706
  Transmission Date: 20120928
  Serious: Yes (Hospitalization)
  Sender: FDA-Public Use
  Company Number: IT-BRISTOL-MYERS SQUIBB COMPANY-16751968

PATIENT
  Age: 73 Year
  Sex: Male

DRUGS (6)
  1. COUMADIN [Suspect]
     Indication: CARDIOVASCULAR EVENT PROPHYLAXIS
     Route: 048
     Dates: start: 20000101, end: 20120625
  2. OLMESARTAN MEDOXOMIL [Concomitant]
     Indication: HYPERTENSION
     Route: 048
  3. ALLOPURINOL [Concomitant]
     Indication: HYPERURICAEMIA
     Dosage: 1DF: 1DOSE
     Route: 048
  4. LASIX [Concomitant]
     Indication: CARDIAC FAILURE
     Route: 048
  5. CARVEDILOL [Concomitant]
     Indication: HYPERTENSION
     Route: 048
  6. ATORVASTATIN CALCIUM [Concomitant]
     Indication: HYPERCHOLESTEROLAEMIA
     Route: 048

REACTIONS (2)
  - SUBDURAL HAEMATOMA [None]
  - HEAD INJURY [None]
